FAERS Safety Report 20520660 (Version 1)
Quarter: 2022Q1

REPORT INFORMATION
  Report Type: Spontaneous
  Country: US (occurrence: US)
  Receive Date: 20220225
  Receipt Date: 20220225
  Transmission Date: 20220423
  Serious: No
  Sender: FDA-Public Use
  Company Number: US-FERRINGPH-2021FE06460

PATIENT
  Sex: Female

DRUGS (1)
  1. DDAVP [Suspect]
     Active Substance: DESMOPRESSIN ACETATE
     Indication: Von Willebrand^s disease
     Route: 065

REACTIONS (3)
  - Therapeutic product effect incomplete [Unknown]
  - Product administration error [Unknown]
  - Product substitution issue [Unknown]
